FAERS Safety Report 11104889 (Version 1)
Quarter: 2015Q2

REPORT INFORMATION
  Report Type: Spontaneous
  Country: US (occurrence: US)
  Receive Date: 20150511
  Receipt Date: 20150511
  Transmission Date: 20150821
  Serious: Yes (Other)
  Sender: FDA-Public Use
  Company Number: US-CELGENE-USA-2015050359

PATIENT
  Sex: Male
  Weight: 108.96 kg

DRUGS (4)
  1. THALOMID [Suspect]
     Active Substance: THALIDOMIDE
     Route: 048
     Dates: start: 201411
  2. THALOMID [Suspect]
     Active Substance: THALIDOMIDE
     Dosage: 200-100 MG
     Route: 048
     Dates: start: 201404
  3. FUROSEMIDE. [Concomitant]
     Active Substance: FUROSEMIDE
     Indication: PRODUCT USED FOR UNKNOWN INDICATION
     Route: 065
  4. THALOMID [Suspect]
     Active Substance: THALIDOMIDE
     Indication: PLASMA CELL MYELOMA
     Route: 048
     Dates: start: 20140220

REACTIONS (2)
  - Oedema peripheral [Not Recovered/Not Resolved]
  - Musculoskeletal pain [Not Recovered/Not Resolved]
